FAERS Safety Report 9439879 (Version 1)
Quarter: 2013Q3

REPORT INFORMATION
  Report Type: Spontaneous
  Country: BR (occurrence: BR)
  Receive Date: 20130805
  Receipt Date: 20130805
  Transmission Date: 20140515
  Serious: No
  Sender: FDA-Public Use
  Company Number: BR-JNJFOC-20130714581

PATIENT
  Age: 84 Year
  Sex: Male
  Weight: 72 kg

DRUGS (2)
  1. DUROGESIC D-TRANS [Suspect]
     Indication: PAIN
     Route: 062
     Dates: start: 201306
  2. DUROGESIC D-TRANS [Suspect]
     Indication: PAIN
     Route: 062
     Dates: start: 20130704

REACTIONS (4)
  - Product quality issue [Unknown]
  - Wrong technique in drug usage process [Unknown]
  - Somnolence [Unknown]
  - Drug ineffective [Unknown]
